FAERS Safety Report 15832451 (Version 2)
Quarter: 2019Q1

REPORT INFORMATION
  Report Type: Spontaneous
  Country: US (occurrence: US)
  Receive Date: 20190116
  Receipt Date: 20190222
  Transmission Date: 20190417
  Serious: No
  Sender: FDA-Public Use
  Company Number: US-TEVA-2019-US-995081

PATIENT
  Sex: Female

DRUGS (1)
  1. AZITHROMYCIN ANHYDROUS. [Suspect]
     Active Substance: AZITHROMYCIN ANHYDROUS
     Route: 065

REACTIONS (6)
  - Dyspepsia [Unknown]
  - Cough [Unknown]
  - Hyperchlorhydria [Unknown]
  - Dysphonia [Unknown]
  - Diarrhoea [Unknown]
  - Nasopharyngitis [Unknown]
